FAERS Safety Report 10230813 (Version 5)
Quarter: 2014Q4

REPORT INFORMATION
  Report Type: Spontaneous
  Country: RU (occurrence: RU)
  Receive Date: 20140611
  Receipt Date: 20141015
  Transmission Date: 20150528
  Serious: Yes (Life-Threatening)
  Sender: FDA-Public Use
  Company Number: RU-TEVA-485990ISR

PATIENT
  Age: 68 Year
  Sex: Female
  Weight: 68 kg

DRUGS (2)
  1. GEMZAR [Suspect]
     Active Substance: GEMCITABINE HYDROCHLORIDE
     Dates: start: 20140523
  2. CISPLATIN TEVA [Suspect]
     Active Substance: CISPLATIN
     Indication: BREAST CANCER
     Dosage: 1 MG/ML 100ML
     Route: 042
     Dates: start: 20140523, end: 20140526

REACTIONS (7)
  - Vomiting [Recovering/Resolving]
  - Asthenia [Recovering/Resolving]
  - Dizziness [Recovering/Resolving]
  - Deafness [Recovering/Resolving]
  - Nausea [Recovering/Resolving]
  - Acute kidney injury [Recovering/Resolving]
  - Tinnitus [Recovering/Resolving]

NARRATIVE: CASE EVENT DATE: 20140526
